FAERS Safety Report 12459922 (Version 1)
Quarter: 2016Q2

REPORT INFORMATION
  Report Type: Spontaneous
  Country: ES (occurrence: ES)
  Receive Date: 20160613
  Receipt Date: 20160613
  Transmission Date: 20160815
  Serious: Yes (Hospitalization)
  Sender: FDA-Public Use
  Company Number: PHHY2016ES077596

PATIENT
  Age: 75 Year
  Sex: Male

DRUGS (3)
  1. IRON [Suspect]
     Active Substance: IRON
     Indication: MELAENA
     Dosage: UNK UNK, QD
     Route: 048
  2. OCTREOTIDE. [Suspect]
     Active Substance: OCTREOTIDE
     Indication: GASTROINTESTINAL HAEMORRHAGE
     Dosage: 50 MCG EVERY 12 HOURS
     Route: 065
  3. OCTREOTIDE. [Suspect]
     Active Substance: OCTREOTIDE
     Dosage: 100 MCG EVERY 12 HOURS
     Route: 065

REACTIONS (2)
  - Gastrointestinal haemorrhage [Not Recovered/Not Resolved]
  - Product use issue [Unknown]
